FAERS Safety Report 10535176 (Version 1)
Quarter: 2014Q4

REPORT INFORMATION
  Report Type: Spontaneous
  Country: BR (occurrence: BR)
  Receive Date: 20141022
  Receipt Date: 20141022
  Transmission Date: 20150529
  Serious: Yes (Other)
  Sender: FDA-Public Use
  Company Number: PHHY2014BR136672

PATIENT
  Age: 78 Year
  Sex: Male

DRUGS (5)
  1. HYDROCHLOROTHIAZIDE. [Suspect]
     Active Substance: HYDROCHLOROTHIAZIDE
     Indication: HYPERTENSION
     Dosage: 25 MG, QD
     Route: 065
  2. NIFEDIPINE. [Concomitant]
     Active Substance: NIFEDIPINE
     Indication: HYPERTENSION
     Dosage: 20 MG, QD
     Route: 065
  3. DICLOFENAC SODIUM. [Concomitant]
     Active Substance: DICLOFENAC SODIUM
     Indication: MYALGIA
     Dosage: 50 MG, UNK
     Route: 065
  4. DOXAZOSIN [Suspect]
     Active Substance: DOXAZOSIN\DOXAZOSIN MESYLATE
     Indication: HYPERTENSION
     Dosage: 2 MG, QD
     Route: 065
  5. GLUCANTIME [Suspect]
     Active Substance: MEGLUMINE ANTIMONIATE
     Indication: PRODUCT USED FOR UNKNOWN INDICATION
     Dosage: 3 DF, UNK
     Route: 065

REACTIONS (17)
  - Dizziness [Recovering/Resolving]
  - Hyperacusis [Recovering/Resolving]
  - Herpes zoster [Unknown]
  - Fall [Unknown]
  - Gait disturbance [Unknown]
  - Mucosal dryness [Unknown]
  - Tinnitus [Recovering/Resolving]
  - Decreased appetite [Unknown]
  - Skin exfoliation [Unknown]
  - Tremor [Recovered/Resolved]
  - Mucous membrane disorder [Unknown]
  - Myalgia [Recovered/Resolved]
  - Rash [Unknown]
  - Weight decreased [Unknown]
  - Ototoxicity [Recovering/Resolving]
  - Deafness neurosensory [Recovering/Resolving]
  - Arthralgia [Unknown]
